FAERS Safety Report 18776216 (Version 10)
Quarter: 2022Q2

REPORT INFORMATION
  Report Type: Report from Study
  Country: US (occurrence: US)
  Receive Date: 20210122
  Receipt Date: 20220520
  Transmission Date: 20220721
  Serious: Yes (Hospitalization, Other)
  Sender: FDA-Public Use
  Company Number: US-TAKEDA-US202030275

PATIENT
  Age: 55 Year
  Sex: Female

DRUGS (1)
  1. HUMAN IMMUNOGLOBULIN G\HYALURONIDASE RECOMBINANT HUMAN [Suspect]
     Active Substance: HUMAN IMMUNOGLOBULIN G\HYALURONIDASE RECOMBINANT HUMAN
     Indication: Primary immunodeficiency syndrome
     Dosage: UNK
     Route: 058

REACTIONS (12)
  - Pneumonia [Recovering/Resolving]
  - Pneumonia bacterial [Recovered/Resolved]
  - Immune-mediated hepatic disorder [Unknown]
  - Systemic lupus erythematosus [Not Recovered/Not Resolved]
  - Muscle spasms [Unknown]
  - COVID-19 [Recovering/Resolving]
  - Cyst [Unknown]
  - Lung disorder [Not Recovered/Not Resolved]
  - Hiatus hernia [Unknown]
  - Candida infection [Unknown]
  - Abdominal pain upper [Unknown]
  - Product dose omission issue [Unknown]

NARRATIVE: CASE EVENT DATE: 20201218
